FAERS Safety Report 18158779 (Version 2)
Quarter: 2020Q4

REPORT INFORMATION
  Report Type: Spontaneous
  Country: US (occurrence: US)
  Receive Date: 20200817
  Receipt Date: 20201202
  Transmission Date: 20210113
  Serious: Yes (Other)
  Sender: FDA-Public Use
  Company Number: US-GILEAD-2020-0489748

PATIENT
  Sex: Male
  Weight: 74.83 kg

DRUGS (52)
  1. BIKTARVY [Concomitant]
     Active Substance: BICTEGRAVIR SODIUM\EMTRICITABINE\TENOFOVIR ALAFENAMIDE FUMARATE
  2. CIPROFLOXACIN. [Concomitant]
     Active Substance: CIPROFLOXACIN
  3. DOXYCYCLINE. [Concomitant]
     Active Substance: DOXYCYCLINE
  4. FLAGYL [METRONIDAZOLE;NYSTATIN] [Concomitant]
  5. KETOPROFEN. [Concomitant]
     Active Substance: KETOPROFEN
  6. LEVOFLOXACIN. [Concomitant]
     Active Substance: LEVOFLOXACIN
  7. PRAVASTATIN. [Concomitant]
     Active Substance: PRAVASTATIN
  8. RISPERIDONE. [Concomitant]
     Active Substance: RISPERIDONE
  9. TENOFOVIR [Concomitant]
     Active Substance: TENOFOVIR
  10. VITAMIN D2 [Concomitant]
     Active Substance: ERGOCALCIFEROL
  11. NORVIR [Concomitant]
     Active Substance: RITONAVIR
  12. AZITHROMYCIN ANHYDROUS. [Concomitant]
     Active Substance: AZITHROMYCIN ANHYDROUS
  13. LAMICTAL [Concomitant]
     Active Substance: LAMOTRIGINE
  14. MELOXICAM. [Concomitant]
     Active Substance: MELOXICAM
  15. NAPROXEN. [Concomitant]
     Active Substance: NAPROXEN
  16. MULTIVITAMINS;MINERALS [Concomitant]
  17. DESCOVY [Concomitant]
     Active Substance: EMTRICITABINE\TENOFOVIR ALAFENAMIDE FUMARATE
  18. ISENTRESS [Concomitant]
     Active Substance: RALTEGRAVIR POTASSIUM
  19. REYATAZ [Concomitant]
     Active Substance: ATAZANAVIR SULFATE
  20. DOCUSATE SODIUM. [Concomitant]
     Active Substance: DOCUSATE SODIUM
  21. FLUCONAZOLE. [Concomitant]
     Active Substance: FLUCONAZOLE
  22. OLANZAPINE. [Concomitant]
     Active Substance: OLANZAPINE
  23. LEXIVA [Concomitant]
     Active Substance: FOSAMPRENAVIR CALCIUM
  24. METOPROLOL TARTRATE. [Concomitant]
     Active Substance: METOPROLOL TARTRATE
  25. NABUMETONE. [Concomitant]
     Active Substance: NABUMETONE
  26. OXYCODONE AND ACETAMINOPHEN [Concomitant]
     Active Substance: ACETAMINOPHEN\OXYCODONE HYDROCHLORIDE
  27. TRAMADOL. [Concomitant]
     Active Substance: TRAMADOL
  28. ATORVASTATIN [Concomitant]
     Active Substance: ATORVASTATIN
  29. DAPSONE. [Concomitant]
     Active Substance: DAPSONE
  30. TIZANIDINE HCL [Concomitant]
     Active Substance: TIZANIDINE HYDROCHLORIDE
  31. VALPROIC ACID. [Concomitant]
     Active Substance: VALPROIC ACID
  32. VIREAD [Suspect]
     Active Substance: TENOFOVIR DISOPROXIL FUMARATE
     Indication: HIV INFECTION
     Dosage: UNK
     Route: 048
     Dates: start: 2006
  33. PREZISTA [Concomitant]
     Active Substance: DARUNAVIR ETHANOLATE
  34. TIVICAY [Concomitant]
     Active Substance: DOLUTEGRAVIR SODIUM
  35. CHANTIX [Concomitant]
     Active Substance: VARENICLINE TARTRATE
  36. CLINDAMYCIN. [Concomitant]
     Active Substance: CLINDAMYCIN
  37. CYCLOBENZAPRINE. [Concomitant]
     Active Substance: CYCLOBENZAPRINE
  38. GABAPENTIN. [Concomitant]
     Active Substance: GABAPENTIN
  39. IBUPROFEN. [Concomitant]
     Active Substance: IBUPROFEN
  40. METAMUCIL THERAPY FOR REGULARITY [Concomitant]
     Active Substance: PSYLLIUM HUSK
  41. METRONIDAZOLE. [Concomitant]
     Active Substance: METRONIDAZOLE
  42. QUETIAPINE FUMARATE. [Concomitant]
     Active Substance: QUETIAPINE FUMARATE
  43. KALETRA [Concomitant]
     Active Substance: LOPINAVIR\RITONAVIR
  44. ZIAGEN [Concomitant]
     Active Substance: ABACAVIR SULFATE
  45. CORTISONE [Concomitant]
     Active Substance: CORTISONE
  46. FUROSEMIDE. [Concomitant]
     Active Substance: FUROSEMIDE
  47. HYDROCODONE BITARTRATE AND ACETAMINOPHEN [Concomitant]
     Active Substance: ACETAMINOPHEN\HYDROCODONE BITARTRATE
  48. ZYPREXA [Concomitant]
     Active Substance: OLANZAPINE
  49. TRUVADA [Suspect]
     Active Substance: EMTRICITABINE\TENOFOVIR DISOPROXIL FUMARATE
     Indication: HIV INFECTION
     Dosage: UNK
     Route: 048
     Dates: start: 20100702, end: 20161026
  50. TRIZIVIR [Concomitant]
     Active Substance: ABACAVIR SULFATE\LAMIVUDINE\ZIDOVUDINE
  51. VIDEX [Concomitant]
     Active Substance: DIDANOSINE
  52. RALTEGRAVIR. [Concomitant]
     Active Substance: RALTEGRAVIR

REACTIONS (5)
  - Osteoporosis [Not Recovered/Not Resolved]
  - Anxiety [Unknown]
  - Pain [Recovered/Resolved]
  - Anhedonia [Unknown]
  - Emotional distress [Recovered/Resolved]

NARRATIVE: CASE EVENT DATE: 2009
